FAERS Safety Report 5157561-7 (Version None)
Quarter: 2006Q4

REPORT INFORMATION
  Report Type: 
  Country: None (occurrence: None)
  Receive Date: 20061127
  Receipt Date: 20061123
  Transmission Date: 20070319
  Serious: Yes (Hospitalization)
  Sender: FDA-Public Use
  Company Number: FR-GLAXOSMITHKLINE-B0447836A

PATIENT
  Age: 93 Year
  Sex: Female

DRUGS (9)
  1. CLAMOXYL [Suspect]
     Dosage: 1G THREE TIMES PER DAY
     Route: 048
     Dates: start: 20060514, end: 20060517
  2. CORDARONE [Concomitant]
     Dosage: 1UNIT PER DAY
     Route: 065
  3. DEPAMIDE [Concomitant]
     Dosage: 600MG PER DAY
     Route: 065
  4. NEXIUM [Concomitant]
     Dosage: 20MG PER DAY
     Route: 065
  5. ALEPSAL [Concomitant]
     Dosage: 25MG PER DAY
     Route: 065
  6. LASILIX 20 [Concomitant]
     Dosage: 20MG PER DAY
     Route: 065
  7. MOGADON [Concomitant]
     Dosage: 1UNIT PER DAY
     Route: 065
  8. FORLAX [Concomitant]
     Dosage: 1UNIT PER DAY
     Route: 065
  9. NITRODERM [Concomitant]
     Dosage: 10MG PER DAY
     Route: 062

REACTIONS (4)
  - FIXED ERUPTION [None]
  - SKIN DISORDER [None]
  - SKIN EROSION [None]
  - TOXIC SKIN ERUPTION [None]
